FAERS Safety Report 5422271-5 (Version None)
Quarter: 2007Q3

REPORT INFORMATION
  Report Type: 
  Country: None (occurrence: None)
  Receive Date: 20070822
  Receipt Date: 20070813
  Transmission Date: 20080115
  Serious: Yes (Life-Threatening, Hospitalization)
  Sender: FDA-Public Use
  Company Number: IN-GENENTECH-243507

PATIENT
  Sex: Female

DRUGS (4)
  1. TRASTUZUMAB [Suspect]
     Indication: BREAST CANCER METASTATIC
     Dosage: 4 MG/KG, UNK
     Route: 042
     Dates: start: 20070331
  2. TRASTUZUMAB [Suspect]
     Dosage: 84 MG, UNK
     Route: 042
     Dates: start: 20070422
  3. DOXORUBICIN [Suspect]
     Indication: BREAST CANCER METASTATIC
     Dosage: 50 MG/M2, Q3W
     Route: 042
     Dates: start: 20070331
  4. PACLITAXEL [Suspect]
     Indication: BREAST CANCER METASTATIC
     Dosage: 80 MG/M2, 1/WEEK
     Route: 042
     Dates: start: 20070331

REACTIONS (2)
  - ANAEMIA [None]
  - FEBRILE NEUTROPENIA [None]
